FAERS Safety Report 23568940 (Version 1)
Quarter: 2024Q1

REPORT INFORMATION
  Report Type: Report from Study
  Country: US (occurrence: US)
  Receive Date: 20240227
  Receipt Date: 20240227
  Transmission Date: 20240410
  Serious: No
  Sender: FDA-Public Use
  Company Number: US-ORG100014127-2023001012

PATIENT
  Age: 76 Year
  Sex: Female

DRUGS (13)
  1. METOPIRONE [Suspect]
     Active Substance: METYRAPONE
     Indication: Cushing^s syndrome
     Dosage: 01 CAPSULE BY MOUTH FOUR TIMES DAILY (EVERY 6 HOURS)
     Route: 048
     Dates: start: 20230824
  2. Creon cap 36000unt [Concomitant]
     Indication: Product used for unknown indication
  3. Dicyclomine cap 10mg [Concomitant]
     Indication: Product used for unknown indication
  4. Loperamide cap 2mg [Concomitant]
     Indication: Product used for unknown indication
  5. Multi-vitamn tab [Concomitant]
     Indication: Product used for unknown indication
  6. Nifedipine tab 30mg er [Concomitant]
     Indication: Product used for unknown indication
  7. Probiotic cap daily [Concomitant]
     Indication: Product used for unknown indication
  8. Recorlev tab 150mg [Concomitant]
     Indication: Product used for unknown indication
  9. SANDOSTATIN LAR DEPOT [Concomitant]
     Active Substance: OCTREOTIDE ACETATE
     Indication: Product used for unknown indication
  10. SERTRALINE [Concomitant]
     Active Substance: SERTRALINE HYDROCHLORIDE
     Indication: Product used for unknown indication
  11. Vitamin b12 tab 100mcg [Concomitant]
     Indication: Product used for unknown indication
  12. Vitamin d3 tab 1000unit [Concomitant]
     Indication: Product used for unknown indication
  13. Vitamin e tab 100unit [Concomitant]
     Indication: Product used for unknown indication

REACTIONS (2)
  - Off label use [Unknown]
  - Drug ineffective [Unknown]
